FAERS Safety Report 5091221-6 (Version None)
Quarter: 2006Q3

REPORT INFORMATION
  Report Type: 
  Country: None (occurrence: None)
  Receive Date: 20060824
  Receipt Date: 20060815
  Transmission Date: 20061208
  Serious: Yes (Death)
  Sender: FDA-Public Use
  Company Number: 2006099405

PATIENT
  Age: 39 Year
  Sex: Female

DRUGS (2)
  1. XANAX [Suspect]
  2. METHADONE HCL [Suspect]
     Indication: BACK PAIN

REACTIONS (3)
  - ACCIDENTAL OVERDOSE [None]
  - DRUG INTERACTION [None]
  - MULTIPLE DRUG OVERDOSE [None]
